FAERS Safety Report 5541497-3 (Version None)
Quarter: 2007Q4

REPORT INFORMATION
  Report Type: 
  Country: None (occurrence: None)
  Receive Date: 20071210
  Receipt Date: 20071130
  Transmission Date: 20080405
  Serious: Yes (Other)
  Sender: FDA-Public Use
  Company Number: FR-JNJFOC-20071201023

PATIENT
  Sex: Female

DRUGS (1)
  1. INFLIXIMAB [Suspect]
     Indication: CROHN'S DISEASE
     Route: 042

REACTIONS (1)
  - KNEE OPERATION [None]
